FAERS Safety Report 6328741-X (Version None)
Quarter: 2009Q3

REPORT INFORMATION
  Report Type: 
  Country: None (occurrence: None)
  Receive Date: 20090826
  Receipt Date: 20070604
  Transmission Date: 20100115
  Serious: Yes (Hospitalization, Other)
  Sender: FDA-Public Use
  Company Number: US-ASTRAZENECA-2006UW07066

PATIENT
  Age: 15326 Day
  Sex: Female
  Weight: 90.7 kg

DRUGS (5)
  1. SEROQUEL [Suspect]
     Indication: BIPOLAR DISORDER
     Dosage: 100 TO 300 MG
     Route: 048
     Dates: start: 20040510
  2. SEROQUEL [Suspect]
     Indication: DEPRESSION
     Dosage: 100 TO 300 MG
     Route: 048
     Dates: start: 20040510
  3. SEROQUEL [Suspect]
     Dosage: 100 - 300 MG
     Route: 048
     Dates: start: 20040501
  4. SEROQUEL [Suspect]
     Dosage: 100 - 300 MG
     Route: 048
     Dates: start: 20040501
  5. PAXIL [Concomitant]
     Indication: DEPRESSION
     Dosage: 25 TO 37.5 MG
     Route: 048
     Dates: start: 20040101

REACTIONS (18)
  - ARTHRALGIA [None]
  - BACK PAIN [None]
  - BLOOD CHOLESTEROL INCREASED [None]
  - BONE PAIN [None]
  - BRONCHITIS [None]
  - CONTUSION [None]
  - COSTOCHONDRITIS [None]
  - COUGH [None]
  - DERMATITIS [None]
  - LYMPHADENOPATHY [None]
  - MUSCULOSKELETAL CHEST PAIN [None]
  - NECK MASS [None]
  - OVERDOSE [None]
  - PAIN IN EXTREMITY [None]
  - PANCREATITIS [None]
  - PRURITUS [None]
  - RASH [None]
  - SKIN PAPILLOMA [None]
